FAERS Safety Report 16987356 (Version 2)
Quarter: 2019Q4

REPORT INFORMATION
  Report Type: Spontaneous
  Country: US (occurrence: US)
  Receive Date: 20191102
  Receipt Date: 20191116
  Transmission Date: 20200122
  Serious: Yes (Hospitalization)
  Sender: FDA-Public Use
  Company Number: US-ZYDUS-042716

PATIENT
  Age: 30 Year
  Sex: Female

DRUGS (1)
  1. ZONISAMIDE. [Suspect]
     Active Substance: ZONISAMIDE
     Indication: EPILEPSY

REACTIONS (4)
  - Lethargy [Unknown]
  - Respiratory failure [Unknown]
  - Erythema [Unknown]
  - Stevens-Johnson syndrome [Unknown]
